FAERS Safety Report 24804520 (Version 1)
Quarter: 2025Q1

REPORT INFORMATION
  Report Type: Spontaneous
  Country: US (occurrence: None)
  Receive Date: 20250102
  Receipt Date: 20250102
  Transmission Date: 20250409
  Serious: No
  Sender: FDA-CTU
  Company Number: None

PATIENT
  Age: 37 Year
  Sex: Female
  Weight: 94.5 kg

DRUGS (1)
  1. TIRZEPATIDE [Suspect]
     Active Substance: TIRZEPATIDE
     Indication: Obesity
     Route: 061
     Dates: start: 20241126, end: 20241204

REACTIONS (4)
  - Injection site urticaria [None]
  - Injection site pain [None]
  - Injection site discolouration [None]
  - Product sterility issue [None]

NARRATIVE: CASE EVENT DATE: 20241130
